FAERS Safety Report 5615406-2 (Version None)
Quarter: 2008Q1

REPORT INFORMATION
  Report Type: 
  Country: None (occurrence: None)
  Receive Date: 20080206
  Receipt Date: 20080124
  Transmission Date: 20080703
  Serious: Yes (Other)
  Sender: FDA-Public Use
  Company Number: US-AMGEN-STX260212

PATIENT
  Sex: Female

DRUGS (28)
  1. ENBREL [Suspect]
     Indication: PSORIATIC ARTHROPATHY
     Route: 058
     Dates: start: 20071102
  2. METHOTREXATE [Concomitant]
     Route: 048
  3. ALBUTEROL [Concomitant]
     Route: 055
  4. AZMACORT [Concomitant]
     Route: 055
  5. ATROVENT [Concomitant]
     Route: 055
  6. SEREVENT [Concomitant]
     Route: 055
  7. KLOR-CON [Concomitant]
  8. TRIAMTERENE [Concomitant]
  9. LEVOXYL [Concomitant]
  10. ISOSORBIDE MONONITRATE [Concomitant]
  11. PLAVIX [Concomitant]
  12. QUININE SULFATE [Concomitant]
  13. CYCLOBENZAPRINE HCL [Concomitant]
  14. HYDROCODONE BITARTRATE + ACETAMINOPHEN [Concomitant]
  15. ALEVE [Concomitant]
  16. VITAMIN CAP [Concomitant]
  17. MECLIZINE [Concomitant]
  18. AFRIN [Concomitant]
     Route: 045
  19. CLOBETASOL PROPIONATE [Concomitant]
  20. DIOVAN [Concomitant]
  21. LOVASTATIN [Concomitant]
  22. ACCOLATE [Concomitant]
  23. DITROPAN [Concomitant]
  24. HYDROCODONE BITARTRATE [Concomitant]
  25. DILTIAZEM [Concomitant]
  26. NITROGLYCERIN [Concomitant]
  27. ALLEGRA [Concomitant]
  28. FISH OIL [Concomitant]
     Route: 048

REACTIONS (5)
  - CARDIAC DISORDER [None]
  - CONSTIPATION [None]
  - DIAPHRAGMATIC HERNIA [None]
  - DRUG INEFFECTIVE [None]
  - OSTEOARTHRITIS [None]
